FAERS Safety Report 11591527 (Version 1)
Quarter: 2015Q4

REPORT INFORMATION
  Report Type: Spontaneous
  Country: US (occurrence: US)
  Receive Date: 20151005
  Receipt Date: 20151005
  Transmission Date: 20160304
  Serious: No
  Sender: FDA-Public Use
  Company Number: US-NOVEN PHARMACEUTICALS, INC.-14US010847

PATIENT
  Sex: Female

DRUGS (2)
  1. COMBIPATCH [Suspect]
     Active Substance: ESTRADIOL\NORETHINDRONE ACETATE
     Dosage: 0.50/0.14MCG/DAY, TWICE WEEKLY
     Route: 062
     Dates: start: 201410, end: 201411
  2. COMBIPATCH [Suspect]
     Active Substance: ESTRADIOL\NORETHINDRONE ACETATE
     Indication: HORMONE REPLACEMENT THERAPY
     Dosage: 0.50/0.25MCG/DAY, TWICE WEEKLY
     Route: 062
     Dates: start: 201411

REACTIONS (2)
  - Product quality issue [Not Recovered/Not Resolved]
  - Metrorrhagia [Recovering/Resolving]

NARRATIVE: CASE EVENT DATE: 2014
